FAERS Safety Report 13227466 (Version 1)
Quarter: 2017Q1

REPORT INFORMATION
  Report Type: Spontaneous
  Country: US (occurrence: US)
  Receive Date: 20170213
  Receipt Date: 20170213
  Transmission Date: 20170428
  Serious: Yes (Other)
  Sender: FDA-Public Use
  Company Number: US-ELI_LILLY_AND_COMPANY-US201702000103

PATIENT
  Sex: Female

DRUGS (3)
  1. CYMBALTA [Suspect]
     Active Substance: DULOXETINE HYDROCHLORIDE
     Dosage: 60 MG, QD
     Route: 065
  2. CYMBALTA [Suspect]
     Active Substance: DULOXETINE HYDROCHLORIDE
     Indication: DEPRESSION
     Dosage: 30 MG, QD
     Route: 065
     Dates: start: 2016
  3. CYMBALTA [Suspect]
     Active Substance: DULOXETINE HYDROCHLORIDE
     Dosage: 60 MG, QOD
     Route: 065

REACTIONS (12)
  - Loss of libido [Unknown]
  - Blood pressure increased [Unknown]
  - Asthenia [Unknown]
  - Glucose tolerance impaired [Unknown]
  - Weight increased [Unknown]
  - Drug dependence [Unknown]
  - Aphasia [Unknown]
  - Withdrawal syndrome [Unknown]
  - Arthralgia [Unknown]
  - Amnesia [Unknown]
  - Paraesthesia [Unknown]
  - Anger [Unknown]
